FAERS Safety Report 13432722 (Version 2)
Quarter: 2017Q2

REPORT INFORMATION
  Report Type: Spontaneous
  Country: None (occurrence: US)
  Receive Date: 20170412
  Receipt Date: 20170420
  Transmission Date: 20170830
  Serious: Yes (Congenital Anomaly)
  Sender: FDA-Public Use
  Company Number: US-AMAG PHARMACEUTICALS, INC.-AMAG201701137

PATIENT

DRUGS (1)
  1. MAKENA [Suspect]
     Active Substance: HYDROXYPROGESTERONE CAPROATE
     Indication: EXPOSURE DURING PREGNANCY
     Dosage: UNK
     Route: 065
     Dates: start: 20150729

REACTIONS (2)
  - Laryngomalacia [Recovered/Resolved]
  - Dyspnoea [Recovered/Resolved]
